FAERS Safety Report 14109829 (Version 1)
Quarter: 2017Q4

REPORT INFORMATION
  Report Type: Spontaneous
  Country: US (occurrence: US)
  Receive Date: 20171020
  Receipt Date: 20171020
  Transmission Date: 20180321
  Serious: No
  Sender: FDA-Public Use
  Company Number: US-TEVA-758221ACC

PATIENT
  Age: 77 Year
  Sex: Female
  Weight: 62.13 kg

DRUGS (4)
  1. XANAX [Concomitant]
     Active Substance: ALPRAZOLAM
  2. ESTRADIOL. [Suspect]
     Active Substance: ESTRADIOL
     Dosage: 1.25 MILLIGRAM DAILY;
     Route: 048
     Dates: start: 1989
  3. ESTRADIOL. [Suspect]
     Active Substance: ESTRADIOL
     Indication: FIBROMYALGIA
     Dosage: 1 GRAM DAILY;
     Route: 048
     Dates: start: 201703
  4. PEPCID [Concomitant]
     Active Substance: FAMOTIDINE

REACTIONS (6)
  - Off label use [Unknown]
  - Feeling abnormal [Not Recovered/Not Resolved]
  - Hot flush [Not Recovered/Not Resolved]
  - Insomnia [Not Recovered/Not Resolved]
  - Irritability [Not Recovered/Not Resolved]
  - Drug ineffective [Unknown]

NARRATIVE: CASE EVENT DATE: 201703
